FAERS Safety Report 17106516 (Version 2)
Quarter: 2020Q1

REPORT INFORMATION
  Report Type: Spontaneous
  Country: US (occurrence: US)
  Receive Date: 20191203
  Receipt Date: 20200108
  Transmission Date: 20200409
  Serious: No
  Sender: FDA-Public Use
  Company Number: US-PFIZER INC-2019516945

PATIENT
  Sex: Female

DRUGS (2)
  1. ADVIL [Suspect]
     Active Substance: IBUPROFEN
     Indication: NERVE COMPRESSION
     Dosage: 200 MG, UNK (TOOK ONE PILL 2-3TIMES A DAY VERY STRONG ONLY TOOK 1 PILL AT A TIME)
  2. ADVIL [Suspect]
     Active Substance: IBUPROFEN
     Dosage: 256 MG, UNK

REACTIONS (4)
  - Nausea [Recovered/Resolved]
  - Product use issue [Unknown]
  - Malaise [Recovered/Resolved]
  - Abdominal discomfort [Recovered/Resolved]

NARRATIVE: CASE EVENT DATE: 2019
